FAERS Safety Report 15247455 (Version 1)
Quarter: 2018Q3

REPORT INFORMATION
  Report Type: Spontaneous
  Country: US (occurrence: US)
  Receive Date: 20180807
  Receipt Date: 20180807
  Transmission Date: 20181010
  Serious: No
  Sender: FDA-Public Use
  Company Number: US-LUPIN PHARMACEUTICALS INC.-2018-04416

PATIENT
  Sex: Female
  Weight: 61.22 kg

DRUGS (1)
  1. LEVETIRACETAM EXTENDED RELEASE TABLET USP, 500 MG [Suspect]
     Active Substance: LEVETIRACETAM
     Indication: SEIZURE
     Dosage: 1000 MG, QD
     Route: 048

REACTIONS (1)
  - Abdominal discomfort [Not Recovered/Not Resolved]
